FAERS Safety Report 21387229 (Version 2)
Quarter: 2022Q4

REPORT INFORMATION
  Report Type: Report from Study
  Country: US (occurrence: US)
  Receive Date: 20220928
  Receipt Date: 20221110
  Transmission Date: 20230113
  Serious: Yes (Hospitalization, Other)
  Sender: FDA-Public Use
  Company Number: US-NOVARTISPH-NVSC2022US194698

PATIENT
  Age: 12 Year
  Sex: Male
  Weight: 23.2 kg

DRUGS (12)
  1. KYMRIAH [Suspect]
     Active Substance: TISAGENLECLEUCEL
     Indication: Acute lymphocytic leukaemia
     Dosage: UNK (3.6 X 10E6 CELL/KG, CAR POSITIVE VIABLE T CELL)
     Route: 042
     Dates: start: 20220816, end: 20220816
  2. CYCLOPHOSPHAMIDE [Concomitant]
     Active Substance: CYCLOPHOSPHAMIDE
     Indication: Lymphodepletion
     Dosage: 820 MG, QD
     Route: 042
     Dates: start: 20220809, end: 20220810
  3. FLUDARABINE [Concomitant]
     Active Substance: FLUDARABINE PHOSPHATE
     Indication: Lymphodepletion
     Dosage: 27.5 MG, QD
     Route: 042
     Dates: start: 20220809, end: 20220812
  4. VORICONAZOLE [Concomitant]
     Active Substance: VORICONAZOLE
     Indication: Prophylaxis
     Dosage: 144 MG, BID
     Route: 048
     Dates: start: 20210802, end: 20220823
  5. VORICONAZOLE [Concomitant]
     Active Substance: VORICONAZOLE
     Dosage: 144 MG, BID
     Route: 048
     Dates: start: 20220804, end: 20220829
  6. VORICONAZOLE [Concomitant]
     Active Substance: VORICONAZOLE
     Dosage: 144 MG, BID
     Route: 048
     Dates: start: 20221006
  7. LEVOFLOXACIN [Concomitant]
     Active Substance: LEVOFLOXACIN
     Indication: Prophylaxis
     Dosage: 250 MG, QD
     Route: 048
     Dates: start: 20220804, end: 20220921
  8. SULFAMETHOXAZOLE AND TRIMETHOPRIM [Concomitant]
     Active Substance: SULFAMETHOXAZOLE\TRIMETHOPRIM
     Indication: Prophylaxis
     Dosage: 60 MG, BID (SAT/SUN ONLY)
     Route: 048
     Dates: start: 20220709, end: 20220918
  9. VENETOCLAX [Concomitant]
     Active Substance: VENETOCLAX
     Indication: Product used for unknown indication
     Dosage: UNK
     Route: 065
  10. OXYCODONE [Concomitant]
     Active Substance: OXYCODONE
     Indication: Pain
     Dosage: 2 MG, PRN Q6H
     Route: 048
     Dates: start: 20220829, end: 20220831
  11. OXYGEN [Concomitant]
     Active Substance: OXYGEN
     Indication: Product used for unknown indication
     Dosage: UNK (VIA NASAL CANNULA)
     Route: 065
     Dates: start: 20220828
  12. LEVETIRACETAM [Concomitant]
     Active Substance: LEVETIRACETAM
     Indication: Seizure prophylaxis
     Dosage: 250 MG, QD
     Route: 048
     Dates: start: 20220804, end: 20220901

REACTIONS (31)
  - Cytokine release syndrome [Recovered/Resolved]
  - Pyrexia [Recovered/Resolved]
  - Headache [Recovered/Resolved]
  - Neurotoxicity [Recovered/Resolved]
  - Immune effector cell-associated neurotoxicity syndrome [Recovered/Resolved]
  - Somnolence [Unknown]
  - Hypotension [Recovered/Resolved]
  - Hypoxia [Recovered/Resolved]
  - Febrile neutropenia [Unknown]
  - Atypical pneumonia [Recovering/Resolving]
  - Pleural effusion [Recovered/Resolved]
  - Enterovirus test positive [Recovering/Resolving]
  - Human rhinovirus test positive [Recovering/Resolving]
  - Hypokalaemia [Recovered/Resolved]
  - Conjunctival haemorrhage [Recovered/Resolved]
  - Hyperkalaemia [Recovered/Resolved]
  - Nausea [Recovered/Resolved]
  - Dehydration [Recovered/Resolved]
  - Anaemia [Recovered/Resolved]
  - Platelet count decreased [Not Recovered/Not Resolved]
  - Hyperglycaemia [Recovered/Resolved]
  - Hyperalbuminaemia [Recovered/Resolved]
  - Hypophosphataemia [Recovered/Resolved]
  - Vomiting [Recovered/Resolved]
  - Diarrhoea [Recovered/Resolved]
  - Hypocalcaemia [Recovered/Resolved]
  - Alanine aminotransferase increased [Not Recovered/Not Resolved]
  - Abdominal pain [Recovered/Resolved]
  - Hyperphosphataemia [Not Recovered/Not Resolved]
  - Electrolyte imbalance [Not Recovered/Not Resolved]
  - Stomatitis [Recovered/Resolved]

NARRATIVE: CASE EVENT DATE: 20220818
